FAERS Safety Report 8905854 (Version 1)
Quarter: 2012Q4

REPORT INFORMATION
  Report Type: 
  Country: IT (occurrence: IT)
  Receive Date: 20121113
  Receipt Date: 20121113
  Transmission Date: 20130627
  Serious: Yes (Other)
  Sender: FDA-Public Use
  Company Number: IT-PFIZER INC-2012282587

PATIENT
  Age: 62 Year
  Sex: Female

DRUGS (2)
  1. TRIATEC [Suspect]
     Indication: HYPERTENSION ARTERIAL
     Dosage: 5 mg, daily
     Route: 048
     Dates: start: 20120901, end: 20121009
  2. XANAX [Concomitant]
     Dosage: UNK

REACTIONS (1)
  - Candidiasis [Recovered/Resolved]
